FAERS Safety Report 22209944 (Version 3)
Quarter: 2025Q1

REPORT INFORMATION
  Report Type: Spontaneous
  Country: US (occurrence: US)
  Receive Date: 20230414
  Receipt Date: 20250328
  Transmission Date: 20250409
  Serious: No
  Sender: SANOFI AVENTIS
  Company Number: US-SA-SAC20230413000534

PATIENT
  Age: 66 Year
  Sex: Female

DRUGS (28)
  1. DUPIXENT [Suspect]
     Active Substance: DUPILUMAB
     Indication: Chronic sinusitis
     Dosage: 300 MG, QOW
     Route: 058
     Dates: start: 20220309
  2. FENTANYL [Concomitant]
     Active Substance: FENTANYL
  3. OXYCODONE [Concomitant]
     Active Substance: OXYCODONE
  4. ESCITALOPRAM OXALATE [Concomitant]
     Active Substance: ESCITALOPRAM OXALATE
  5. VITAMIN D NOS [Concomitant]
     Active Substance: CHOLECALCIFEROL\ERGOCALCIFEROL
  6. ALBUTEROL [Concomitant]
     Active Substance: ALBUTEROL
  7. LAMOTRIGINE [Concomitant]
     Active Substance: LAMOTRIGINE
  8. REPATHA [Concomitant]
     Active Substance: EVOLOCUMAB
  9. SPIRONOLACTONE [Concomitant]
     Active Substance: SPIRONOLACTONE
  10. METOPROLOL SUCCINATE [Concomitant]
     Active Substance: METOPROLOL SUCCINATE
  11. FAMOTIDINE [Concomitant]
     Active Substance: FAMOTIDINE
  12. CYCLOBENZAPRINE [Concomitant]
     Active Substance: CYCLOBENZAPRINE
  13. DOCUSATE SODIUM [Concomitant]
     Active Substance: DOCUSATE SODIUM
  14. KLOR-CON M20 [Concomitant]
     Active Substance: POTASSIUM CHLORIDE
  15. DONEPEZIL HYDROCHLORIDE [Concomitant]
     Active Substance: DONEPEZIL HYDROCHLORIDE
  16. LEVOTHYROXINE [Concomitant]
     Active Substance: LEVOTHYROXINE
  17. EMGALITY [Concomitant]
     Active Substance: GALCANEZUMAB-GNLM
  18. MONTELUKAST SODIUM [Concomitant]
     Active Substance: MONTELUKAST SODIUM
  19. GABAPENTIN [Concomitant]
     Active Substance: GABAPENTIN
  20. ALPRAZOLAM [Concomitant]
     Active Substance: ALPRAZOLAM
  21. MEMANTINE [Concomitant]
     Active Substance: MEMANTINE
  22. ENALAPRIL MALEATE [Concomitant]
     Active Substance: ENALAPRIL MALEATE
  23. AIMOVIG [Concomitant]
     Active Substance: ERENUMAB-AOOE
  24. DIAZEPAM [Concomitant]
     Active Substance: DIAZEPAM
  25. LASIX [Concomitant]
     Active Substance: FUROSEMIDE
  26. ANORO ELLIPTA [Concomitant]
     Active Substance: UMECLIDINIUM BROMIDE\VILANTEROL TRIFENATATE
  27. ABILIFY [Concomitant]
     Active Substance: ARIPIPRAZOLE
  28. BUTALBITAL, ACETAMINOPHEN, AND CAFFEINE [Concomitant]
     Active Substance: ACETAMINOPHEN\BUTALBITAL\CAFFEINE

REACTIONS (2)
  - Impaired quality of life [Unknown]
  - Product use in unapproved indication [Unknown]

NARRATIVE: CASE EVENT DATE: 20220309
